FAERS Safety Report 4515752-X (Version None)
Quarter: 2004Q4

REPORT INFORMATION
  Report Type: 
  Country: None (occurrence: None)
  Receive Date: 20041129
  Receipt Date: 20041116
  Transmission Date: 20050328
  Serious: Yes (Other)
  Sender: FDA-Public Use
  Company Number: 2004097396

PATIENT
  Sex: Male

DRUGS (3)
  1. DEPO-MEDROL [Suspect]
     Indication: NEPHROTIC SYNDROME
     Dosage: 2-HR INFUSION (30 MG/KG, 1 IN 1 CYCLICAL)
  2. PREDNISONE TAB [Suspect]
     Indication: NEPHROTIC SYNDROME
     Dosage: 1 MG/KG (1 MG/KG, 1 IN 1 CYCLICAL)
  3. HEPARIN SODIUM [Suspect]
     Indication: NEPHROTIC SYNDROME
     Dosage: 10-15 UNITS/KG (1 IN 1 CYCLICAL)

REACTIONS (1)
  - PERITONITIS PNEUMOCOCCAL [None]
